FAERS Safety Report 21965900 (Version 1)
Quarter: 2023Q1

REPORT INFORMATION
  Report Type: Spontaneous
  Country: US (occurrence: None)
  Receive Date: 20230208
  Receipt Date: 20230208
  Transmission Date: 20230418
  Serious: Yes (Other)
  Sender: FDA-Public Use
  Company Number: US-ROCHE-3279329

PATIENT
  Age: 67 Year
  Sex: Female
  Weight: 59 kg

DRUGS (12)
  1. RITUXAN [Suspect]
     Active Substance: RITUXIMAB
     Indication: Diffuse large B-cell lymphoma
     Dosage: 6 CYCLES GIVEN WITH DA-EPOCH
     Route: 041
     Dates: start: 201703, end: 201706
  2. RITUXAN [Suspect]
     Active Substance: RITUXIMAB
     Dosage: GIVEN 3 CYCLES AS RICE
     Route: 042
     Dates: start: 20191028, end: 20200111
  3. RITUXAN [Suspect]
     Active Substance: RITUXIMAB
     Dosage: 6 CYCLES GIVEN WITH POLATUZAMAB
     Route: 042
     Dates: start: 202204, end: 202208
  4. POLIVY [Suspect]
     Active Substance: POLATUZUMAB VEDOTIN-PIIQ
     Indication: Diffuse large B-cell lymphoma
     Dosage: 6 CYCLES GIVEN WITH RITUXAN
     Route: 042
     Dates: start: 202204, end: 202208
  5. VINCRISTINE SULFATE [Concomitant]
     Active Substance: VINCRISTINE SULFATE
     Indication: Diffuse large B-cell lymphoma
     Dosage: 6 CYCLES GIVEN AS DA-EPOCH WITH RITUXAN
     Route: 042
     Dates: start: 201703, end: 201706
  6. CYCLOPHOSPHAMIDE [Concomitant]
     Active Substance: CYCLOPHOSPHAMIDE
     Indication: Diffuse large B-cell lymphoma
     Dosage: GIVEN 6 CYCLES WITH RITUXAN AND DA-EPOCH
     Route: 042
     Dates: start: 201703, end: 201706
  7. DOXORUBICIN HYDROCHLORIDE [Concomitant]
     Active Substance: DOXORUBICIN HYDROCHLORIDE
     Indication: Diffuse large B-cell lymphoma
     Dosage: GIVEN 6 CYCLES WITH RITUXAN AND DA-EPOCH
     Route: 042
     Dates: start: 201703, end: 201706
  8. IFOSFAMIDE [Concomitant]
     Active Substance: IFOSFAMIDE
     Indication: Diffuse large B-cell lymphoma
     Dosage: 3 CYCLES GIVEN AS RICE
     Route: 042
     Dates: start: 20191028, end: 20200111
  9. CARBOPLATIN [Concomitant]
     Active Substance: CARBOPLATIN
     Indication: Diffuse large B-cell lymphoma
     Dosage: 3 CYCLES GIVEN AS RICE
     Route: 042
     Dates: start: 20191028, end: 20200111
  10. LONCASTUXIMAB TESIRINE [Concomitant]
     Active Substance: LONCASTUXIMAB TESIRINE
     Indication: Diffuse large B-cell lymphoma
     Route: 042
     Dates: start: 20220908
  11. ETOPOSIDE PHOSPHATE [Concomitant]
     Active Substance: ETOPOSIDE PHOSPHATE
     Dosage: GIVEN 6 CYCLES WITH RITUXAN AND DA-EPOCH
     Route: 042
     Dates: start: 201703, end: 201706
  12. ETOPOSIDE PHOSPHATE [Concomitant]
     Active Substance: ETOPOSIDE PHOSPHATE
     Dosage: GIVEN 3 CYCLES WITH RICE
     Route: 042
     Dates: start: 20191028, end: 20200111

REACTIONS (3)
  - Renal failure [Not Recovered/Not Resolved]
  - Ill-defined disorder [Not Recovered/Not Resolved]
  - Disease progression [Not Recovered/Not Resolved]

NARRATIVE: CASE EVENT DATE: 20191022
